FAERS Safety Report 8667684 (Version 2)
Quarter: 2013Q3

REPORT INFORMATION
  Report Type: Spontaneous
  Country: US (occurrence: US)
  Receive Date: 20120717
  Receipt Date: 20130718
  Transmission Date: 20140515
  Serious: No
  Sender: FDA-Public Use
  Company Number: US-FOUGERA-2012FO001098

PATIENT
  Age: 15 Year
  Sex: Female
  Weight: 42.68 kg

DRUGS (1)
  1. CLINDAMYCIN [Suspect]
     Indication: ACNE
     Route: 061
     Dates: start: 2011

REACTIONS (3)
  - Alopecia [Recovered/Resolved]
  - Accidental exposure to product [Recovered/Resolved]
  - Hair growth abnormal [Recovering/Resolving]
